FAERS Safety Report 17140503 (Version 1)
Quarter: 2019Q4

REPORT INFORMATION
  Report Type: Spontaneous
  Country: US (occurrence: US)
  Receive Date: 20191211
  Receipt Date: 20191211
  Transmission Date: 20200122
  Serious: Yes (Other)
  Sender: FDA-Public Use
  Company Number: US-UCBSA-2016008541

PATIENT
  Sex: Female

DRUGS (1)
  1. KEPPRA [Suspect]
     Active Substance: LEVETIRACETAM
     Indication: EPILEPSY
     Dosage: UNK

REACTIONS (8)
  - Amnesia [Unknown]
  - Aggression [Unknown]
  - Cognitive disorder [Unknown]
  - Mood swings [Unknown]
  - Seizure [Recovered/Resolved]
  - Mental disorder [Unknown]
  - Language disorder [Unknown]
  - Feeling abnormal [Unknown]
